FAERS Safety Report 25975446 (Version 1)
Quarter: 2025Q4

REPORT INFORMATION
  Report Type: Spontaneous
  Country: EU (occurrence: EU)
  Receive Date: 20251029
  Receipt Date: 20251029
  Transmission Date: 20260117
  Serious: Yes (Other)
  Sender: FRESENIUS KABI
  Company Number: None

PATIENT
  Age: 44 Year
  Sex: Female

DRUGS (1)
  1. SUCCINYLCHOLINE CHLORIDE [Suspect]
     Active Substance: SUCCINYLCHOLINE CHLORIDE
     Indication: Skin test
     Dosage: UNKNOWN
     Route: 023
     Dates: start: 20000101

REACTIONS (2)
  - Erythema [Recovered/Resolved]
  - Administration site papule [Recovered/Resolved]

NARRATIVE: CASE EVENT DATE: 20000101
